FAERS Safety Report 18921461 (Version 2)
Quarter: 2021Q1

REPORT INFORMATION
  Report Type: Spontaneous
  Country: SG (occurrence: AU)
  Receive Date: 20210222
  Receipt Date: 20210224
  Transmission Date: 20210420
  Serious: Yes (Other)
  Sender: FDA-Public Use
  Company Number: AU-GLAXOSMITHKLINE-AU2021041308

PATIENT
  Age: 74 Year
  Sex: Male

DRUGS (1)
  1. DUODART [Suspect]
     Active Substance: DUTASTERIDE\TAMSULOSIN
     Indication: PRODUCT USED FOR UNKNOWN INDICATION
     Dosage: UNK

REACTIONS (12)
  - Movement disorder [Unknown]
  - Bedridden [Unknown]
  - Motor neurone disease [Unknown]
  - Terminal state [Unknown]
  - Oropharyngeal discomfort [Unknown]
  - Product solubility abnormal [Unknown]
  - Cough [Unknown]
  - Gait inability [Unknown]
  - Asthenia [Not Recovered/Not Resolved]
  - Choking [Unknown]
  - Mechanical ventilation [Unknown]
  - Dysphagia [Unknown]

NARRATIVE: CASE EVENT DATE: 201910
